FAERS Safety Report 9098912 (Version 1)
Quarter: 2013Q1

REPORT INFORMATION
  Report Type: Spontaneous
  Country: FR (occurrence: FR)
  Receive Date: 20130213
  Receipt Date: 20130213
  Transmission Date: 20140127
  Serious: Yes (Death, Other)
  Sender: FDA-Public Use
  Company Number: FR-PFIZER INC-2013056213

PATIENT
  Age: 65 Year
  Sex: Male

DRUGS (8)
  1. CORDARONE [Suspect]
     Indication: ATRIAL FIBRILLATION
     Dosage: 1 DOSAGE FORM DAILY
     Route: 048
     Dates: start: 2009, end: 20120101
  2. CORDARONE [Suspect]
     Dosage: 2 DOSAGE FORM; DAILY
     Route: 048
     Dates: start: 20120101, end: 20121221
  3. RAMIPRIL [Concomitant]
     Dosage: UNK
     Dates: start: 2006, end: 20121221
  4. PREVISCAN [Concomitant]
  5. FUROSEMIDE [Concomitant]
  6. DIFFU K [Concomitant]
  7. TARDYFERON [Concomitant]
  8. BROMAZEPAM [Concomitant]

REACTIONS (10)
  - Interstitial lung disease [Fatal]
  - Acute respiratory failure [Fatal]
  - Mitral valve prolapse [Unknown]
  - Mitral valve incompetence [Unknown]
  - Gastrointestinal angiodysplasia [Unknown]
  - Hypotension [Unknown]
  - Iron deficiency anaemia [Unknown]
  - Decreased appetite [Unknown]
  - Weight decreased [Unknown]
  - Viral infection [Unknown]
